FAERS Safety Report 9157017 (Version 1)
Quarter: 2013Q1

REPORT INFORMATION
  Report Type: Spontaneous
  Country: PT (occurrence: PT)
  Receive Date: 20130312
  Receipt Date: 20130312
  Transmission Date: 20140127
  Serious: Yes (Death, Hospitalization, Other)
  Sender: FDA-Public Use
  Company Number: PT-JNJFOC-20130302714

PATIENT
  Age: 41 Year
  Sex: Female

DRUGS (1)
  1. IBUPROFEN [Suspect]
     Indication: GOUT
     Dosage: 20 PILLS OF 400MG PER DAY FOR 1 YEAR
     Route: 065

REACTIONS (4)
  - Renal failure chronic [Fatal]
  - Overdose [Unknown]
  - Drug dependence [Unknown]
  - Congenital cystic kidney disease [Unknown]
